FAERS Safety Report 6063503-2 (Version None)
Quarter: 2009Q1

REPORT INFORMATION
  Report Type: 
  Country: None (occurrence: None)
  Receive Date: 20090203
  Receipt Date: 20090129
  Transmission Date: 20090719
  Serious: Yes (Other)
  Sender: FDA-Public Use
  Company Number: US-ALLERGAN-0901072US

PATIENT
  Sex: Female
  Weight: 99.773 kg

DRUGS (5)
  1. BOTOX [Suspect]
     Indication: MUSCLE SPASTICITY
     Dosage: 360 UNITS, SINGLE
     Route: 030
     Dates: start: 20081216, end: 20081216
  2. GABAPENTIN [Concomitant]
  3. CITALOPRAM [Concomitant]
  4. BACLOFEN [Concomitant]
  5. OMEPRAZOLE [Concomitant]

REACTIONS (1)
  - HEMIPARESIS [None]
